FAERS Safety Report 5268158-2 (Version None)
Quarter: 2007Q1

REPORT INFORMATION
  Report Type: 
  Country: None (occurrence: None)
  Receive Date: 20070314
  Receipt Date: 20070314
  Transmission Date: 20070707
  Serious: Yes (Death, Hospitalization)
  Sender: FDA-Public Use
  Company Number: None

PATIENT
  Sex: Male
  Weight: 118.1 kg

DRUGS (3)
  1. FLUOROURACIL [Suspect]
     Dosage: 6540 MG
     Dates: end: 20070223
  2. LEUCOVORIN CALCIUM [Suspect]
     Dosage: 940 MG
     Dates: end: 20070221
  3. ELOXATIN [Suspect]
     Dosage: 200 MG
     Dates: end: 20070221

REACTIONS (4)
  - NEUTROPENIC SEPSIS [None]
  - PLATELET COUNT ABNORMAL [None]
  - STOMATITIS [None]
  - WHITE BLOOD CELL COUNT ABNORMAL [None]
